FAERS Safety Report 6511451-3 (Version None)
Quarter: 2009Q4

REPORT INFORMATION
  Report Type: 
  Country: None (occurrence: None)
  Receive Date: 20091222
  Receipt Date: 20091222
  Transmission Date: 20100525
  Serious: Yes (Death, Other)
  Sender: FDA-Public Use
  Company Number: US-ABBOTT-09P-163-0560153-00

PATIENT
  Sex: Female
  Weight: 58.566 kg

DRUGS (16)
  1. HUMIRA [Suspect]
     Indication: COLITIS ULCERATIVE
     Dosage: 4 INJECTIONS INITIAL DOSE
     Route: 058
     Dates: start: 20090130, end: 20090130
  2. HUMIRA [Suspect]
     Route: 058
     Dates: start: 20090214, end: 20090214
  3. HUMIRA [Suspect]
  4. PREDNISONE [Suspect]
     Indication: COLITIS ULCERATIVE
     Route: 048
     Dates: end: 20090227
  5. PREDNISONE [Suspect]
     Dosage: DAILY, DECREASING DOSE
     Route: 048
  6. ASACOL [Concomitant]
     Indication: COLITIS ULCERATIVE
     Route: 048
     Dates: end: 20090227
  7. ASACOL [Concomitant]
  8. FERROUS SULFATE TAB [Concomitant]
     Indication: ANAEMIA
     Route: 048
     Dates: end: 20090227
  9. CARAFATE [Concomitant]
     Indication: GASTROINTESTINAL ULCER
     Route: 048
     Dates: end: 20090227
  10. PANTOPRAZOLE [Concomitant]
     Indication: GASTROINTESTINAL ULCER
     Route: 048
     Dates: end: 20090227
  11. FLAGYL [Concomitant]
     Indication: DRUG USE FOR UNKNOWN INDICATION
     Route: 048
     Dates: end: 20090120
  12. MULTI-VITAMIN [Concomitant]
     Indication: DRUG USE FOR UNKNOWN INDICATION
     Route: 048
  13. ALPRAZOLAM [Concomitant]
     Indication: DRUG USE FOR UNKNOWN INDICATION
  14. PAXIL [Concomitant]
     Indication: DRUG USE FOR UNKNOWN INDICATION
     Route: 048
  15. PREDNISONE [Concomitant]
     Indication: DRUG USE FOR UNKNOWN INDICATION
     Dosage: DAILY
  16. PROTONIX [Concomitant]
     Indication: DRUG USE FOR UNKNOWN INDICATION
     Dosage: DAILY

REACTIONS (5)
  - ABDOMINAL PAIN [None]
  - COLITIS ULCERATIVE [None]
  - DIARRHOEA [None]
  - DRUG INEFFECTIVE [None]
  - FATIGUE [None]
